FAERS Safety Report 9041195 (Version 1)
Quarter: 2013Q1

REPORT INFORMATION
  Report Type: Spontaneous
  Country: US (occurrence: None)
  Receive Date: 20130123
  Receipt Date: 20130123
  Transmission Date: 20140127
  Serious: No
  Sender: FDA-Public Use
  Company Number: None

PATIENT
  Sex: 0

DRUGS (1)
  1. MEFLOQUINE [Suspect]

REACTIONS (19)
  - Panic attack [None]
  - Hallucination, visual [None]
  - Abnormal dreams [None]
  - Agitation [None]
  - Sleep disorder [None]
  - Abnormal behaviour [None]
  - Insomnia [None]
  - Hypersomnia [None]
  - Cognitive disorder [None]
  - Disturbance in attention [None]
  - Depressed level of consciousness [None]
  - Memory impairment [None]
  - Drug hypersensitivity [None]
  - Fatigue [None]
  - Mental impairment [None]
  - Cyclothymic disorder [None]
  - Generalised anxiety disorder [None]
  - Drug hypersensitivity [None]
  - Irritability [None]
